FAERS Safety Report 5215187-0 (Version None)
Quarter: 2007Q1

REPORT INFORMATION
  Report Type: 
  Country: None (occurrence: None)
  Receive Date: 20061108
  Receipt Date: 20060427
  Transmission Date: 20070707
  Serious: Yes (Hospitalization)
  Sender: FDA-Public Use
  Company Number: US200604004664

PATIENT
  Age: 17 Year
  Sex: Female

DRUGS (2)
  1. PROZAC [Suspect]
     Indication: DEPRESSION
     Dosage: 40 MG, DAILY (1/D), ORAL
     Route: 048
     Dates: start: 20051101
  2. RISPERIDONE [Concomitant]

REACTIONS (2)
  - AGITATION [None]
  - SUICIDAL IDEATION [None]
